FAERS Safety Report 8708539 (Version 2)
Quarter: 2012Q4

REPORT INFORMATION
  Report Type: 
  Country: US (occurrence: US)
  Receive Date: 20120806
  Receipt Date: 20120830
  Transmission Date: 20130627
  Serious: Yes (Death)
  Sender: FDA-Public Use
  Company Number: PHEH2012US015215

PATIENT
  Age: 45 Year
  Sex: Female

DRUGS (1)
  1. TOBI [Suspect]
     Dosage: 300 mg/5 ml, BID

REACTIONS (1)
  - Gastric cancer stage IV [Fatal]
